FAERS Safety Report 25182200 (Version 1)
Quarter: 2025Q2

REPORT INFORMATION
  Report Type: Report from Study
  Country: US (occurrence: US)
  Receive Date: 20250410
  Receipt Date: 20250410
  Transmission Date: 20250717
  Serious: Yes (Hospitalization)
  Sender: ALEXION PHARMACEUTICALS
  Company Number: US-ASTRAZENECA-202504USA004759US

PATIENT
  Age: 51 Year

DRUGS (1)
  1. STRENSIQ [Suspect]
     Active Substance: ASFOTASE ALFA
     Indication: Phosphorus metabolism disorder
     Dosage: 52 MILLIGRAM, SIX TIMES/WEEK, AS DIRECTED
     Route: 065

REACTIONS (4)
  - Mouth haemorrhage [Unknown]
  - Pharyngeal swelling [Unknown]
  - Urticaria [Unknown]
  - Pain [Unknown]
